FAERS Safety Report 11506339 (Version 1)
Quarter: 2015Q3

REPORT INFORMATION
  Report Type: Spontaneous
  Country: US (occurrence: US)
  Receive Date: 20150915
  Receipt Date: 20150915
  Transmission Date: 20151125
  Serious: No
  Sender: FDA-Public Use
  Company Number: US-ROCHE-727662

PATIENT
  Age: 37 Year
  Sex: Female

DRUGS (3)
  1. AMOXYCILLIN [Suspect]
     Active Substance: AMOXICILLIN
     Indication: EAR PAIN
     Route: 065
  2. COPEGUS [Suspect]
     Active Substance: RIBAVIRIN
     Indication: HEPATITIS C
     Dosage: TAKEN IN DIVIDED DOSES
     Route: 048
  3. PEGASYS [Suspect]
     Active Substance: PEGINTERFERON ALFA-2A
     Indication: HEPATITIS C
     Dosage: FORM: PRE-FILLED SYRINGE
     Route: 058

REACTIONS (13)
  - Rash pruritic [Unknown]
  - Oedema [Recovered/Resolved]
  - White blood cell count decreased [Unknown]
  - Neck pain [Unknown]
  - Pyrexia [Unknown]
  - Axillary pain [Recovered/Resolved]
  - Tooth abscess [Unknown]
  - Red blood cell count decreased [Unknown]
  - Haemoglobin decreased [Unknown]
  - Ear pain [Unknown]
  - Malaise [Not Recovered/Not Resolved]
  - Platelet count decreased [Unknown]
  - Pain in jaw [Unknown]

NARRATIVE: CASE EVENT DATE: 20100902
